FAERS Safety Report 16954807 (Version 1)
Quarter: 2019Q4

REPORT INFORMATION
  Report Type: Spontaneous
  Country: PL (occurrence: PL)
  Receive Date: 20191024
  Receipt Date: 20191024
  Transmission Date: 20200122
  Serious: Yes (Life-Threatening, Hospitalization, Disabling, Other)
  Sender: FDA-Public Use
  Company Number: PL-JNJFOC-20191024125

PATIENT

DRUGS (1)
  1. PARACETAMOL [Suspect]
     Active Substance: ACETAMINOPHEN
     Indication: PRODUCT USED FOR UNKNOWN INDICATION
     Route: 065

REACTIONS (8)
  - Rash [Unknown]
  - Stevens-Johnson syndrome [Unknown]
  - Acute generalised exanthematous pustulosis [Unknown]
  - Urticaria [Unknown]
  - Anaphylactic reaction [Unknown]
  - Angioedema [Unknown]
  - Drug reaction with eosinophilia and systemic symptoms [Unknown]
  - Toxic epidermal necrolysis [Unknown]
